FAERS Safety Report 8511147-2 (Version None)
Quarter: 2012Q3

REPORT INFORMATION
  Report Type: 
  Country: None (occurrence: None)
  Receive Date: 20120716
  Receipt Date: 20120710
  Transmission Date: 20120928
  Serious: Yes (Death)
  Sender: FDA-Public Use
  Company Number: DE-JNJFOC-20120705928

PATIENT
  Age: 89 Year
  Sex: Male

DRUGS (11)
  1. BISOPROLOL FUMARATE [Interacting]
     Indication: DEMENTIA
     Route: 065
  2. RISPERIDONE [Interacting]
     Indication: DEMENTIA
     Route: 065
  3. ALFUZOSIN HCL [Interacting]
     Indication: DEMENTIA
     Route: 065
  4. ISOSORBIDE DINITRATE [Interacting]
     Indication: DEMENTIA
     Route: 065
  5. CAPTOPRIL [Interacting]
     Indication: DEMENTIA
     Route: 065
  6. ASPIRIN [Interacting]
     Indication: DEMENTIA
     Route: 065
  7. HALOPERIDOL [Suspect]
     Indication: DEMENTIA
     Route: 065
  8. HYDROCHLOROTHIAZIDE [Interacting]
     Indication: DEMENTIA
     Route: 065
  9. GALANTAMINE HYDROBROMIDE [Interacting]
     Indication: DEMENTIA
     Route: 065
  10. MELPERONE [Interacting]
     Indication: DEMENTIA
     Route: 065
  11. OXAZEPAM [Interacting]
     Indication: DEMENTIA
     Route: 065

REACTIONS (2)
  - DEATH [None]
  - DRUG INTERACTION [None]
